FAERS Safety Report 26118521 (Version 1)
Quarter: 2025Q4

REPORT INFORMATION
  Report Type: Spontaneous
  Country: US (occurrence: US)
  Receive Date: 20251203
  Receipt Date: 20251203
  Transmission Date: 20260118
  Serious: No
  Sender: SERVIER
  Company Number: US-SERVIER-S25017082

PATIENT

DRUGS (2)
  1. VORANIGO [Suspect]
     Active Substance: VORASIDENIB
     Indication: Brain cancer metastatic
     Dosage: UNK
     Route: 048
  2. PEMBROLIZUMAB [Concomitant]
     Active Substance: PEMBROLIZUMAB
     Indication: Brain cancer metastatic
     Dosage: UNK, UNKNOWN
     Route: 065

REACTIONS (2)
  - Product use issue [Recovered/Resolved]
  - Adverse reaction [Unknown]
